FAERS Safety Report 14607445 (Version 2)
Quarter: 2018Q1

REPORT INFORMATION
  Report Type: Spontaneous
  Country: US (occurrence: US)
  Receive Date: 20180307
  Receipt Date: 20180308
  Transmission Date: 20180509
  Serious: No
  Sender: FDA-Public Use
  Company Number: US-PFIZER INC-2018094391

PATIENT
  Age: 81 Year
  Sex: Female
  Weight: 79 kg

DRUGS (1)
  1. ADVIL LIQUI-GELS [Suspect]
     Active Substance: IBUPROFEN
     Indication: SCIATICA
     Dosage: 2 DF, 3X/DAY
     Dates: start: 20180220, end: 20180303

REACTIONS (2)
  - Intentional product misuse [Unknown]
  - Ageusia [Not Recovered/Not Resolved]

NARRATIVE: CASE EVENT DATE: 20180222
